FAERS Safety Report 12204230 (Version 1)
Quarter: 2016Q1

REPORT INFORMATION
  Report Type: Spontaneous
  Country: US (occurrence: None)
  Receive Date: 20160322
  Receipt Date: 20160322
  Transmission Date: 20160526
  Serious: Yes (Hospitalization)
  Sender: FDA-Public Use
  Company Number: None

PATIENT
  Age: 57 Year
  Sex: Female

DRUGS (1)
  1. WARFARIN 2.5 MG [Suspect]
     Active Substance: WARFARIN
     Dosage: 2.5 MG QD PO HOME MEDICATION
     Route: 048

REACTIONS (3)
  - Nausea [None]
  - International normalised ratio increased [None]
  - Vomiting [None]

NARRATIVE: CASE EVENT DATE: 20150128
